FAERS Safety Report 6028060-5 (Version None)
Quarter: 2008Q4

REPORT INFORMATION
  Report Type: 
  Country: None (occurrence: None)
  Receive Date: 20081231
  Receipt Date: 20081222
  Transmission Date: 20090506
  Serious: Yes (Life-Threatening, Hospitalization)
  Sender: FDA-Public Use
  Company Number: 2008AP003544

PATIENT
  Age: 23 Year
  Sex: Female

DRUGS (5)
  1. CITALOPRAM HYDROBROMIDE [Suspect]
  2. ZOPICLONE (ZOPICLONE) [Suspect]
  3. DICLOFENAC (DICLOFENAC) [Suspect]
  4. FLUOXETINE HCL [Suspect]
  5. MIRTAZAPINE [Suspect]

REACTIONS (19)
  - ACIDOSIS [None]
  - ACUTE PULMONARY OEDEMA [None]
  - AGONAL RHYTHM [None]
  - BLOOD AMYLASE INCREASED [None]
  - BLOOD CREATINE PHOSPHOKINASE INCREASED [None]
  - BLOOD PRESSURE DECREASED [None]
  - CARDIAC ARREST [None]
  - DIALYSIS [None]
  - GLASGOW COMA SCALE ABNORMAL [None]
  - HAEMODIALYSIS [None]
  - HEPATIC FUNCTION ABNORMAL [None]
  - HYPOTHERMIA [None]
  - MULTI-ORGAN FAILURE [None]
  - MULTIPLE DRUG OVERDOSE [None]
  - OLIGURIA [None]
  - RENAL IMPAIRMENT [None]
  - RESPIRATORY FAILURE [None]
  - RESUSCITATION [None]
  - VENTRICULAR FIBRILLATION [None]
